FAERS Safety Report 9592526 (Version 1)
Quarter: 2013Q3

REPORT INFORMATION
  Report Type: Spontaneous
  Country: US (occurrence: None)
  Receive Date: 20130930
  Receipt Date: 20130930
  Transmission Date: 20140515
  Serious: Yes (Other)
  Sender: FDA-Public Use
  Company Number: 1000046195

PATIENT
  Age: 81 Year
  Sex: Female

DRUGS (11)
  1. LINZESS [Suspect]
     Indication: CONSTIPATION
     Route: 048
     Dates: start: 201305, end: 201305
  2. LINZESS [Suspect]
     Indication: CONSTIPATION
     Route: 048
     Dates: start: 20130623, end: 20130623
  3. LEVOTHYROXINE (LEVOTHYROXINE SODIUM) (LEVOTHYROXINE SODIUM) [Concomitant]
  4. PANTOPRAZOLE (PANTOPRAZOLE) (PANTOPRAZOLE) [Concomitant]
  5. LEXAPRO(ESCITALOPRAM OXALATE)(ESCITALOPRAM OXALATE) [Concomitant]
  6. POTASSIUM(POTASSIUM)(POTASSIUM) [Concomitant]
  7. HYDROCHLOROTHIAZIDE(HYDROCHLOROTHIAZIDE)(25 MILLIGRAM, TABLETS)(HYDROCHLOROTHIAZIDE) [Concomitant]
  8. ASPIRIN(ACETYLSALICYLIC ACID)(ACETYLSALICYLIC ACID) [Concomitant]
  9. CLONAZEPAM(CLONAZEPAM)(CLONAZEPAM) [Concomitant]
  10. GAS-X(SIMETICONE)(SIMETICONE) [Concomitant]
  11. MILK OF MAGNESIA [Concomitant]

REACTIONS (2)
  - Abdominal pain [None]
  - Diarrhoea [None]
